FAERS Safety Report 9644224 (Version 2)
Quarter: 2013Q4

REPORT INFORMATION
  Report Type: Spontaneous
  Country: JP (occurrence: JP)
  Receive Date: 20131024
  Receipt Date: 20131111
  Transmission Date: 20140711
  Serious: Yes (Death)
  Sender: FDA-Public Use
  Company Number: JP-MERCK-1310JPN010253

PATIENT
  Age: 69 Year
  Sex: Male

DRUGS (1)
  1. DEXAMETHASONE [Suspect]
     Indication: METASTASES TO BONE
     Dosage: DAILY DOSE: 2 MG
     Route: 048

REACTIONS (1)
  - Cryptococcosis [Fatal]
